FAERS Safety Report 7371915-X (Version None)
Quarter: 2011Q1

REPORT INFORMATION
  Report Type: 
  Country: None (occurrence: None)
  Receive Date: 20110324
  Receipt Date: 20110317
  Transmission Date: 20110831
  Serious: Yes (Death)
  Sender: FDA-Public Use
  Company Number: US-ROCHE-766669

PATIENT
  Age: 37 Year
  Sex: Female

DRUGS (14)
  1. DULOXETINE [Suspect]
     Dosage: ONGOING STATUS UNKNOWN AT THE TIME OF DEATH.
     Route: 048
  2. FENTANYL [Suspect]
     Dosage: ONGOING STATUS UNKNOWN AT THE TIME OF DEATH. DRUG: OPIOID.
     Route: 048
  3. TOPIRAMATE [Suspect]
     Dosage: ONGOING STATUS UNKNOWN AT THE TIME OF DEATH.
     Route: 048
  4. RANITIDINE [Suspect]
     Dosage: ONGOING STATUS UNKNOWN AT THE TIME OF DEATH.
     Route: 048
  5. PREDNISONE [Suspect]
     Dosage: ONGOING STATUS UNKNOWN AT THE TIME OF DEATH.
     Route: 048
  6. METFORMIN (NON-ROCHE/NON-COMPARATOR) [Suspect]
     Dosage: ONGOING STATUS UNKNOWN AT THE TIME OF DEATH.
     Route: 048
  7. ETHANOL [Suspect]
     Dosage: ONGOING STATUS UNKNOWN AT THE TIME OF DEATH. DRUG: ANTICHOLINERGIC/ PHENOBARBITAL.
     Route: 048
  8. OXCARBAZEPINE [Suspect]
     Dosage: DRUG : OXCABAZEPINE/ 10-HYDROXYCARZEPINE. ONGOING STATUS UNKNOWN AT THE TIME OF DEATH.
     Route: 048
  9. GEMFIBROZIL [Suspect]
     Dosage: ONGOING STATUS UNKNOWN AT THE TIME OF DEATH.
     Route: 048
  10. BUPROPION [Suspect]
     Dosage: ONGOING STATUS UNKNOWN AT THE TIME OF DEATH.
     Route: 048
  11. CLONAZEPAM [Suspect]
     Dosage: ONGOING STATUS UNKNOWN AT THE TIME OF DEATH.
     Route: 048
  12. ARIPIPRAZOLE [Suspect]
     Dosage: ONGOING STATUS UNKNOWN AT THE TIME OF DEATH. DRUG: ARIPRIPRAZOLE.
     Route: 048
  13. LEVOTHYROXINE SODIUM [Suspect]
     Dosage: ONGOING STATUS UNKNOWN AT THE TIME OF DEATH.
     Route: 048
  14. SIMVASTATIN [Suspect]
     Dosage: ONGOING STATUS UNKNOWN AT THE TIME OF DEATH.
     Route: 048

REACTIONS (3)
  - TOXICITY TO VARIOUS AGENTS [None]
  - RESPIRATORY ARREST [None]
  - CARDIAC ARREST [None]
